FAERS Safety Report 24440910 (Version 2)
Quarter: 2024Q4

REPORT INFORMATION
  Report Type: Report from Study
  Country: AR (occurrence: AR)
  Receive Date: 20241016
  Receipt Date: 20241017
  Transmission Date: 20250114
  Serious: No
  Sender: ROCHE
  Company Number: AR-ROCHE-3442516

PATIENT
  Age: 31 Year
  Sex: Male
  Weight: 95.5 kg

DRUGS (9)
  1. EMICIZUMAB [Suspect]
     Active Substance: EMICIZUMAB
     Indication: Factor VIII deficiency
     Dosage: 08/AUG/2022, 02/AUG/2022, 19/AUG/2022, 16/DEC/2022, 23/DEC/2022, 30/DEC/2022, 06/JAN/2023, 13JAN/202
     Route: 058
     Dates: start: 20220729
  2. EMICIZUMAB [Suspect]
     Active Substance: EMICIZUMAB
     Dosage: 02/SEP/2022,09/SEP/2022, 16/SEP/2022, 23/SEP/2022, 30/SEP/2022, 07/OCT/2022, 14/OCT/2022, 21/OCT/202
     Route: 058
     Dates: start: 20220826
  3. PROTHROMBIN COMPLEX CONCENTRATE [Suspect]
     Active Substance: COAGULATION FACTOR IX HUMAN\COAGULATION FACTOR VII HUMAN\COAGULATION FACTOR X HUMAN\PROTEIN C\PROTEI
     Indication: Factor VIII deficiency
     Route: 042
     Dates: start: 2014
  4. ETORICOXIB [Concomitant]
     Active Substance: ETORICOXIB
     Indication: Pain
     Route: 048
  5. BETAMETHASONE;DICLOFENAC;VITAMIN B12 NOS [Concomitant]
     Indication: Pain
     Route: 048
  6. BETAMETHASONE;DICLOFENAC;VITAMIN B12 NOS [Concomitant]
     Dosage: 1 CAPSULE
     Route: 048
     Dates: start: 20230206
  7. OMEPRAZOLE [Concomitant]
     Active Substance: OMEPRAZOLE
     Indication: Dyspepsia
     Route: 048
  8. TRAMADOL [Concomitant]
     Active Substance: TRAMADOL
     Indication: Pain
     Route: 048
     Dates: start: 202203
  9. FEIBA [Concomitant]
     Active Substance: ANTI-INHIBITOR COAGULANT COMPLEX
     Dosage: 7000.00 U
     Dates: start: 20220126

REACTIONS (1)
  - Joint injury [Recovered/Resolved]

NARRATIVE: CASE EVENT DATE: 20230206
